FAERS Safety Report 25205656 (Version 1)
Quarter: 2025Q2

REPORT INFORMATION
  Report Type: Spontaneous
  Country: US (occurrence: US)
  Receive Date: 20250417
  Receipt Date: 20250417
  Transmission Date: 20250717
  Serious: Yes (Other)
  Sender: COOPERSURGICAL
  Company Number: US-COOPERSURGICAL, INC.-2024CPS004181

PATIENT
  Sex: Female
  Weight: 82.54 kg

DRUGS (5)
  1. PARAGARD T 380A [Suspect]
     Active Substance: COPPER
     Route: 015
     Dates: start: 20140423, end: 20250130
  2. CROMOLYN SODIUM [Concomitant]
     Active Substance: CROMOLYN SODIUM
     Route: 045
  3. LORATADINE [Concomitant]
     Active Substance: LORATADINE
     Route: 048
  4. FAMOTIDINE [Concomitant]
     Active Substance: FAMOTIDINE
  5. CALCIUM [Concomitant]
     Active Substance: CALCIUM

REACTIONS (13)
  - Cervical dysplasia [Recovered/Resolved]
  - Device breakage [Recovered/Resolved]
  - Foreign body in reproductive tract [Recovered/Resolved]
  - Complication of device removal [Recovered/Resolved]
  - Embedded device [Recovered/Resolved]
  - Cervical cyst [Unknown]
  - Papilloma viral infection [Recovered/Resolved]
  - Premenstrual syndrome [Unknown]
  - Depression [Unknown]
  - Arthralgia [Unknown]
  - Rash [Unknown]
  - Device use issue [Recovered/Resolved]
  - Off label use [Unknown]

NARRATIVE: CASE EVENT DATE: 20170101
